FAERS Safety Report 8917076 (Version 1)
Quarter: 2012Q4

REPORT INFORMATION
  Report Type: 
  Country: US (occurrence: US)
  Receive Date: 20121120
  Receipt Date: 20121120
  Transmission Date: 20130627
  Serious: No
  Sender: FDA-Public Use
  Company Number: US-ALLERGAN-1214191US

PATIENT
  Sex: Female

DRUGS (2)
  1. LASTACAFT [Suspect]
     Indication: ALLERGY NOS
     Dosage: 1 Gtt OU, on and off for 2 weeks
     Route: 047
     Dates: start: 201209, end: 201210
  2. RESTASIS� [Concomitant]
     Indication: DRY EYES
     Dosage: 1 Gtt OU, bid
     Route: 047
     Dates: start: 2010

REACTIONS (2)
  - Scleral hyperaemia [Recovered/Resolved]
  - Eye irritation [Recovered/Resolved]
